FAERS Safety Report 15101279 (Version 2)
Quarter: 2019Q1

REPORT INFORMATION
  Report Type: Spontaneous
  Country: US (occurrence: US)
  Receive Date: 20180703
  Receipt Date: 20190131
  Transmission Date: 20190417
  Serious: No
  Sender: FDA-Public Use
  Company Number: US-GLENMARK PHARMACEUTICALS-2017GMK029485

PATIENT

DRUGS (2)
  1. MUPIROCIN. [Suspect]
     Active Substance: MUPIROCIN
     Indication: PRODUCT USED FOR UNKNOWN INDICATION
     Dosage: UNK
     Route: 061
     Dates: start: 20171024, end: 20171024
  2. MUPIROCIN. [Suspect]
     Active Substance: MUPIROCIN
     Indication: DRY SKIN
     Dosage: UNK, (FEW YEARS AGO)
     Route: 045

REACTIONS (3)
  - Expired product administered [Unknown]
  - Product use in unapproved indication [Unknown]
  - Incorrect route of product administration [Unknown]

NARRATIVE: CASE EVENT DATE: 20171024
